FAERS Safety Report 8575959-1 (Version None)
Quarter: 2012Q3

REPORT INFORMATION
  Report Type: 
  Country: None (occurrence: None)
  Receive Date: 20120807
  Receipt Date: 20120727
  Transmission Date: 20120928
  Serious: Yes (Hospitalization)
  Sender: FDA-Public Use
  Company Number: US-BAYER-2012-017404

PATIENT
  Age: 23 Year
  Sex: Female
  Weight: 63.492 kg

DRUGS (7)
  1. YASMIN [Suspect]
     Indication: ACNE
     Dosage: UNK
     Route: 048
     Dates: start: 20040101, end: 20050101
  2. IRON [Concomitant]
     Indication: MEDICAL DIET
  3. YASMIN [Suspect]
     Indication: MENSTRUAL CYCLE MANAGEMENT
     Dosage: UNK
     Dates: start: 20070101, end: 20100101
  4. YASMIN [Suspect]
     Indication: PREMENSTRUAL SYNDROME
  5. OVCON-35 [Concomitant]
  6. GLUCOPHAGE [Concomitant]
  7. MINI-PILL [Concomitant]
     Dosage: UNK
     Dates: start: 20050312, end: 20050401

REACTIONS (3)
  - BILIARY DYSKINESIA [None]
  - PAIN [None]
  - CHOLECYSTITIS [None]
